FAERS Safety Report 12507498 (Version 2)
Quarter: 2016Q3

REPORT INFORMATION
  Report Type: Spontaneous
  Country: JP (occurrence: JP)
  Receive Date: 20160629
  Receipt Date: 20160708
  Transmission Date: 20161109
  Serious: Yes (Other)
  Sender: FDA-Public Use
  Company Number: JP-ROCHE-1785481

PATIENT
  Age: 69 Year
  Sex: Female

DRUGS (5)
  1. TARCEVA [Suspect]
     Active Substance: ERLOTINIB HYDROCHLORIDE
     Indication: NON-SMALL CELL LUNG CANCER
     Dosage: THE FRACTIONATION DOSE FREQUENCY IS UNCERTAIN.?PER ONE DAY
     Route: 048
     Dates: start: 20140715, end: 20160203
  2. TARCEVA [Suspect]
     Active Substance: ERLOTINIB HYDROCHLORIDE
     Indication: NON-SMALL CELL LUNG CANCER
     Dosage: THE FRACTIONATION DOSE FREQUENCY IS UNCERTAIN.?PER ONE DAY
     Route: 048
     Dates: start: 20160304, end: 20160501
  3. TARCEVA [Suspect]
     Active Substance: ERLOTINIB HYDROCHLORIDE
     Indication: NON-SMALL CELL LUNG CANCER
     Dosage: THE FRACTIONATION DOSE FREQUENCY IS UNCERTAIN.?PER ONE DAY
     Route: 048
     Dates: start: 20160525, end: 20160612
  4. TARCEVA [Suspect]
     Active Substance: ERLOTINIB HYDROCHLORIDE
     Indication: NON-SMALL CELL LUNG CANCER
     Dosage: THE FRACTIONATION DOSE FREQUENCY IS UNCERTAIN.?PER ONE DAY
     Route: 048
     Dates: start: 20160613
  5. AVASTIN [Suspect]
     Active Substance: BEVACIZUMAB
     Indication: NON-SMALL CELL LUNG CANCER
     Route: 041
     Dates: start: 20140715, end: 20160422

REACTIONS (3)
  - Herpes zoster [Recovered/Resolved]
  - Optic ischaemic neuropathy [Not Recovered/Not Resolved]
  - Visual acuity reduced [Not Recovered/Not Resolved]

NARRATIVE: CASE EVENT DATE: 20160204
